FAERS Safety Report 14732797 (Version 10)
Quarter: 2024Q1

REPORT INFORMATION
  Report Type: Spontaneous
  Country: US (occurrence: US)
  Receive Date: 20180409
  Receipt Date: 20240104
  Transmission Date: 20240409
  Serious: Yes (Life-Threatening, Other)
  Sender: FDA-Public Use
  Company Number: US-PFIZER INC-2018140873

PATIENT
  Age: 47 Year
  Sex: Female

DRUGS (4)
  1. PROTONIX [Suspect]
     Active Substance: PANTOPRAZOLE SODIUM
     Indication: Ulcer
     Dosage: 40 MG, DAILY (TWO OF THEM A DAY)
     Dates: start: 2000
  2. PROTONIX [Suspect]
     Active Substance: PANTOPRAZOLE SODIUM
     Indication: Dyspepsia
     Dosage: 40 MG, 2X/DAY (QUANTITY FOR 90 DAYS: 180) (30 MIN PRIOR TO A MEAL)
  3. PROTONIX [Suspect]
     Active Substance: PANTOPRAZOLE SODIUM
     Indication: Gastrooesophageal reflux disease
  4. NEURONTIN [Concomitant]
     Active Substance: GABAPENTIN
     Dosage: 200 MG, 3X/DAY
     Route: 048

REACTIONS (5)
  - Vomiting [Unknown]
  - Drug dependence [Unknown]
  - Gout [Unknown]
  - Illness [Unknown]
  - Product prescribing issue [Unknown]
